FAERS Safety Report 7090925-3 (Version None)
Quarter: 2010Q4

REPORT INFORMATION
  Report Type: 
  Country: None (occurrence: None)
  Receive Date: 20101103
  Receipt Date: 20101103
  Transmission Date: 20110411
  Serious: Yes (Hospitalization)
  Sender: FDA-Public Use
  Company Number: None

PATIENT
  Sex: Male
  Weight: 57.1986 kg

DRUGS (12)
  1. SUNITINIB MALATE [Suspect]
     Indication: GASTROINTESTINAL STROMAL TUMOUR
     Dosage: SUNITINIB 25MG DAILY ORAL
     Route: 048
     Dates: start: 20080109, end: 20101028
  2. IMATINIB [Suspect]
     Dosage: IMATINIB 200MG DAILY ORAL
     Route: 048
     Dates: start: 20080109, end: 20101028
  3. ASPIRIN [Concomitant]
  4. DUTASTERIDE [Concomitant]
  5. ESOMEPRAZOLE MAGNESIUM [Concomitant]
  6. FERROUS SULFATE [Concomitant]
  7. GUAIFENESIS LA (SUST RELEASE) [Concomitant]
  8. MULTI-VITAMIN [Concomitant]
  9. NIACIN [Concomitant]
  10. POTASSIUM CHLORIDE [Concomitant]
  11. URSODIOL [Concomitant]
  12. CRESTOR [Concomitant]

REACTIONS (4)
  - DIARRHOEA [None]
  - NAUSEA [None]
  - SMALL INTESTINAL OBSTRUCTION [None]
  - VOMITING [None]
